FAERS Safety Report 11787651 (Version 2)
Quarter: 2016Q1

REPORT INFORMATION
  Report Type: Spontaneous
  Country: IT (occurrence: IT)
  Receive Date: 20151130
  Receipt Date: 20160127
  Transmission Date: 20160525
  Serious: Yes (Hospitalization)
  Sender: FDA-Public Use
  Company Number: IT-BAYER-2015-474612

PATIENT
  Age: 84 Year
  Sex: Female

DRUGS (4)
  1. ENTACT [Suspect]
     Active Substance: ESCITALOPRAM OXALATE
  2. CARDIOASPIRIN [Suspect]
     Active Substance: ASPIRIN
  3. ALPRAZOLAM. [Suspect]
     Active Substance: ALPRAZOLAM
  4. TRIATEC [Suspect]
     Active Substance: RAMIPRIL

REACTIONS (3)
  - Sopor [Recovering/Resolving]
  - Drug abuse [Recovering/Resolving]
  - Disorientation [Recovering/Resolving]

NARRATIVE: CASE EVENT DATE: 20150924
